FAERS Safety Report 17023731 (Version 1)
Quarter: 2019Q4

REPORT INFORMATION
  Report Type: Spontaneous
  Country: US (occurrence: US)
  Receive Date: 20191113
  Receipt Date: 20191113
  Transmission Date: 20200122
  Serious: No
  Sender: FDA-Public Use
  Company Number: US-AUROBINDO-AUR-APL-2019-052550

PATIENT

DRUGS (4)
  1. DALFAMPRIDINE EXTENDED RELEASE TABLET [Suspect]
     Active Substance: DALFAMPRIDINE
     Indication: MULTIPLE SCLEROSIS
     Dosage: 10 MILLIGRAM, TWO TIMES A DAY
     Route: 048
  2. TECFIDERA [Suspect]
     Active Substance: DIMETHYL FUMARATE
     Dosage: 240 MILLIGRAM, TWO TIMES A DAY
     Route: 048
     Dates: start: 20180924
  3. VITAMIN D [Concomitant]
     Active Substance: VITAMIN D NOS
     Indication: PRODUCT USED FOR UNKNOWN INDICATION
     Dosage: UNK
     Route: 065
  4. TECFIDERA [Suspect]
     Active Substance: DIMETHYL FUMARATE
     Indication: MULTIPLE SCLEROSIS
     Dosage: 240 MILLIGRAM, TWO TIMES A DAY
     Route: 048
     Dates: start: 20180830

REACTIONS (4)
  - Flushing [Unknown]
  - Product dose omission [Unknown]
  - Fall [Unknown]
  - Gait disturbance [Unknown]
